FAERS Safety Report 10152519 (Version 1)
Quarter: 2014Q2

REPORT INFORMATION
  Report Type: Spontaneous
  Country: IT (occurrence: None)
  Receive Date: 20140501
  Receipt Date: 20140501
  Transmission Date: 20141212
  Serious: Yes (Other)
  Sender: FDA-Public Use
  Company Number: VAL_03092_2014

PATIENT
  Age: 78 Year
  Sex: Male

DRUGS (10)
  1. METOPROLOL (METOPROLOL - METOPROLOL TARTRATE) [Suspect]
     Indication: ATRIAL FIBRILLATION
     Dosage: 100 MG, DF
  2. FEBUXOSTAT (FEBUXOSTAT) [Suspect]
     Indication: HYPERURICAEMIA
  3. ISOSORBIDE MONONITRATE (UNKNOWN) [Concomitant]
  4. ACENOCUMAROL (UNKNOWN) [Concomitant]
  5. TORASEMIDE (UNKNOWN) [Concomitant]
  6. SIMVASTATIN (UNKNOWN) [Concomitant]
  7. BARNIDIPINE (UNKNOWN) [Concomitant]
  8. CORTICOSTEROIDS (UNKNOWN) [Concomitant]
  9. HYDROCHLOROTHIAZIDE (UNKNOWN) [Concomitant]
  10. FOSINOPRIL (UNKNOWN) [Concomitant]

REACTIONS (5)
  - Leukocytosis [None]
  - Hyperglycaemia [None]
  - Hyperuricaemia [None]
  - Skin lesion [None]
  - Histiocytosis [None]
